FAERS Safety Report 4405362-7 (Version None)
Quarter: 2004Q3

REPORT INFORMATION
  Report Type: 
  Country: None (occurrence: None)
  Receive Date: 20040716
  Receipt Date: 20040702
  Transmission Date: 20050211
  Serious: No
  Sender: FDA-Public Use
  Company Number: 04P-167-0265729-00

PATIENT
  Age: 36 Year
  Sex: Female

DRUGS (2)
  1. VALPROATE SODIUM [Suspect]
     Indication: EPILEPSY
     Dosage: 2 GM, 1 IN 1 D, ORAL
     Route: 048
     Dates: start: 19991101, end: 20021101
  2. LEVETIRACETAM [Suspect]
     Indication: EPILEPSY
     Dosage: 1.5 GM, 1 IN 1 D
     Dates: start: 20010301

REACTIONS (4)
  - DEPRESSION [None]
  - DRUG INTERACTION [None]
  - WEIGHT DECREASED [None]
  - WEIGHT INCREASED [None]
